FAERS Safety Report 9631054 (Version 3)
Quarter: 2013Q4

REPORT INFORMATION
  Report Type: Spontaneous
  Country: IE (occurrence: IE)
  Receive Date: 20131018
  Receipt Date: 20131101
  Transmission Date: 20140711
  Serious: Yes (Other)
  Sender: FDA-Public Use
  Company Number: IE-AMGEN-IRLSP2013068282

PATIENT
  Age: 66 Year
  Sex: Female

DRUGS (6)
  1. PROLIA [Suspect]
     Indication: OSTEOPOROSIS
     Dosage: 60 MG, Q6MO
     Route: 058
     Dates: start: 201208
  2. ARCOXIA [Concomitant]
  3. NEXIUM                             /01479302/ [Concomitant]
  4. IXPRIM [Concomitant]
  5. LEXOTAN [Concomitant]
  6. LIPITOR [Concomitant]

REACTIONS (1)
  - Weight decreased [Not Recovered/Not Resolved]
